FAERS Safety Report 9409697 (Version 2)
Quarter: 2013Q3

REPORT INFORMATION
  Report Type: Report from Study
  Country: CA (occurrence: CA)
  Receive Date: 20130719
  Receipt Date: 20130823
  Transmission Date: 20140515
  Serious: Yes (Death)
  Sender: FDA-Public Use
  Company Number: PHHY2013CA076762

PATIENT
  Sex: Male

DRUGS (14)
  1. ACLASTA [Suspect]
     Indication: OSTEOPOROSIS
     Dosage: UNK UKN, UNK
     Route: 042
     Dates: start: 20090526
  2. ACLASTA [Suspect]
     Dosage: UNK UKN, UNK
     Route: 042
     Dates: start: 20100626
  3. ACLASTA [Suspect]
     Dosage: UNK UKN, UNK
     Route: 042
     Dates: start: 20110901
  4. ACLASTA [Suspect]
     Dosage: UNK UKN, UNK
     Route: 042
     Dates: start: 20120814
  5. DEMEROL [Concomitant]
     Dosage: 50 MG, PRN
  6. CARBAMAZEPINE [Concomitant]
     Dosage: 200 MG, BID
  7. VIT D [Concomitant]
     Dosage: 3000 U, PER DAY
  8. ALLOPURINOL [Concomitant]
  9. ZANTAC [Concomitant]
  10. URSODIOL [Concomitant]
  11. TEARGEL [Concomitant]
     Dosage: UNK UKN, PRN
  12. COLACE [Concomitant]
  13. SENOKOT                                 /UNK/ [Concomitant]
  14. LACTULOSE [Concomitant]

REACTIONS (3)
  - Muscular dystrophy [Fatal]
  - Lung disorder [Fatal]
  - Pneumonia [Fatal]
